FAERS Safety Report 13059635 (Version 2)
Quarter: 2017Q1

REPORT INFORMATION
  Report Type: Spontaneous
  Country: US (occurrence: US)
  Receive Date: 20161223
  Receipt Date: 20170217
  Transmission Date: 20170428
  Serious: Yes (Death, Hospitalization)
  Sender: FDA-Public Use
  Company Number: US-JNJFOC-20161217939

PATIENT
  Age: 53 Year
  Sex: Male

DRUGS (3)
  1. XARELTO [Suspect]
     Active Substance: RIVAROXABAN
     Indication: THROMBOSIS PROPHYLAXIS
     Route: 048
     Dates: start: 20140313, end: 20141008
  2. XARELTO [Suspect]
     Active Substance: RIVAROXABAN
     Indication: ATRIAL FIBRILLATION
     Route: 048
     Dates: start: 20140313, end: 20141008
  3. XARELTO [Suspect]
     Active Substance: RIVAROXABAN
     Indication: CEREBROVASCULAR ACCIDENT PROPHYLAXIS
     Route: 048
     Dates: start: 20140313, end: 20141008

REACTIONS (7)
  - Gastrointestinal haemorrhage [Recovered/Resolved]
  - Diabetic neuropathy [Fatal]
  - Hypertension [Fatal]
  - Myocardial ischaemia [Fatal]
  - Acute kidney injury [Recovering/Resolving]
  - Haemorrhagic transformation stroke [Recovering/Resolving]
  - Neuralgia [Fatal]

NARRATIVE: CASE EVENT DATE: 20140821
